FAERS Safety Report 10598386 (Version 2)
Quarter: 2014Q4

REPORT INFORMATION
  Report Type: Spontaneous
  Country: CZ (occurrence: CZ)
  Receive Date: 20141121
  Receipt Date: 20141230
  Transmission Date: 20150529
  Serious: Yes (Other)
  Sender: FDA-Public Use
  Company Number: CZ-MYLANLABS-2014M1011266

PATIENT

DRUGS (1)
  1. DESMOPRESSIN [Suspect]
     Active Substance: DESMOPRESSIN
     Indication: POLYURIA
     Dosage: 10 ?G, QD
     Route: 065

REACTIONS (2)
  - Wrong drug administered [Recovering/Resolving]
  - Inappropriate antidiuretic hormone secretion [Recovering/Resolving]
